FAERS Safety Report 9292804 (Version 1)
Quarter: 2013Q2

REPORT INFORMATION
  Report Type: Spontaneous
  Country: US (occurrence: None)
  Receive Date: 20130515
  Receipt Date: 20130515
  Transmission Date: 20140414
  Serious: Yes (Disabling)
  Sender: FDA-Public Use
  Company Number: None

PATIENT
  Sex: Male
  Weight: 61.24 kg

DRUGS (2)
  1. LYRICA [Suspect]
     Indication: NEUROPATHY PERIPHERAL
     Dosage: EVERY OTHER NITE
     Dates: start: 1999
  2. GABAPENTIN [Suspect]
     Dosage: EVERY OTHER NITE
     Dates: start: 1999

REACTIONS (3)
  - Dizziness [None]
  - Balance disorder [None]
  - Gait disturbance [None]
